FAERS Safety Report 7320383-2 (Version None)
Quarter: 2011Q1

REPORT INFORMATION
  Report Type: 
  Country: None (occurrence: None)
  Receive Date: 20110215
  Receipt Date: 20110131
  Transmission Date: 20110831
  Serious: Yes (Hospitalization, Congenital Anomaly)
  Sender: FDA-Public Use
  Company Number: E2B_00000038

PATIENT
  Sex: Male
  Weight: 2.89 kg

DRUGS (4)
  1. VALPROIC ACID [Suspect]
     Indication: EPILEPSY
     Dosage: 1750 [ (500-500-750) MG], TRANSPLACENTAL
     Route: 064
  2. LEVETIRACETAM [Suspect]
     Indication: EPILEPSY
     Dosage: 750 [3X250MG/D], TRANSPLACENTAL
     Route: 064
  3. FOLIC ACID [Concomitant]
  4. LAMOTRIGINE [Suspect]
     Indication: EPILEPSY
     Dosage: 325 [ (3X75+100) MG/D], TRANSPLACENTAL
     Route: 064

REACTIONS (8)
  - MATERNAL DRUGS AFFECTING FOETUS [None]
  - DYSMORPHISM [None]
  - HYPOTONIA NEONATAL [None]
  - LOW SET EARS [None]
  - NEONATAL RESPIRATORY DISTRESS SYNDROME [None]
  - FEEDING DISORDER NEONATAL [None]
  - AGITATION NEONATAL [None]
  - HAND DEFORMITY [None]
